FAERS Safety Report 6412492-7 (Version None)
Quarter: 2009Q4

REPORT INFORMATION
  Report Type: 
  Country: None (occurrence: None)
  Receive Date: 20091023
  Receipt Date: 20090323
  Transmission Date: 20100525
  Serious: Yes (Other)
  Sender: FDA-Public Use
  Company Number: US-BRISTOL-MYERS SQUIBB COMPANY-14407860

PATIENT

DRUGS (2)
  1. KENALOG-40 [Suspect]
     Indication: DIABETIC RETINOPATHY
     Dosage: 1DF=40MG/ML TAKEN .25ML TAKEN ONCE
     Route: 031
  2. KENALOG-40 [Suspect]
     Indication: VENOUS OCCLUSION
     Dosage: 1DF=40MG/ML TAKEN .25ML TAKEN ONCE
     Route: 031

REACTIONS (4)
  - BLINDNESS TRANSIENT [None]
  - INJECTION SITE INFLAMMATION [None]
  - INJECTION SITE SWELLING [None]
  - INTRAOCULAR PRESSURE INCREASED [None]
